FAERS Safety Report 17209152 (Version 1)
Quarter: 2019Q4

REPORT INFORMATION
  Report Type: Spontaneous
  Country: US (occurrence: US)
  Receive Date: 20191227
  Receipt Date: 20191227
  Transmission Date: 20200122
  Serious: Yes (Other)
  Sender: FDA-Public Use
  Company Number: US-EYEVANCE PHARMACEUTICALS-2019EYE00104

PATIENT
  Sex: Female

DRUGS (1)
  1. FRESHKOTE [Suspect]
     Active Substance: POLYVINYL ALCOHOL\POVIDONE

REACTIONS (1)
  - Hypersensitivity [Unknown]
